FAERS Safety Report 16858056 (Version 2)
Quarter: 2019Q3

REPORT INFORMATION
  Report Type: Spontaneous
  Country: HU (occurrence: HU)
  Receive Date: 20190926
  Receipt Date: 20190926
  Transmission Date: 20191005
  Serious: Yes (Other)
  Sender: FDA-Public Use
  Company Number: PHHY2019HU221397

PATIENT
  Age: 43 Year
  Sex: Female
  Weight: 68 kg

DRUGS (6)
  1. COSENTYX [Suspect]
     Active Substance: SECUKINUMAB
     Indication: PSORIATIC ARTHROPATHY
     Dosage: 2 DF, QMO
     Route: 058
     Dates: start: 20180913, end: 20190826
  2. CEFUROXIME. [Suspect]
     Active Substance: CEFUROXIME
     Indication: PRODUCT USED FOR UNKNOWN INDICATION
     Dosage: UNK
     Route: 065
  3. PENICILLIN V POTASSIUM. [Suspect]
     Active Substance: PENICILLIN V POTASSIUM
     Indication: PRODUCT USED FOR UNKNOWN INDICATION
     Dosage: UNK
     Route: 065
  4. NAMAXIR [Concomitant]
     Active Substance: METHOTREXATE
     Indication: PRODUCT USED FOR UNKNOWN INDICATION
     Dosage: 25 MG, QW
     Route: 065
  5. PARACETAMOL [Suspect]
     Active Substance: ACETAMINOPHEN
     Indication: PRODUCT USED FOR UNKNOWN INDICATION
     Dosage: UNK
     Route: 065
  6. BUTAMIRATE [Suspect]
     Active Substance: BUTAMIRATE
     Indication: PRODUCT USED FOR UNKNOWN INDICATION
     Dosage: UNK
     Route: 065

REACTIONS (10)
  - Psoriasis [Unknown]
  - Pain [Unknown]
  - Skin plaque [Unknown]
  - Skin fissures [Unknown]
  - Hypoacusis [Recovered/Resolved]
  - Rubber sensitivity [Unknown]
  - Psoriatic arthropathy [Unknown]
  - Secretion discharge [Unknown]
  - Drug hypersensitivity [Unknown]
  - Arthropathy [Unknown]

NARRATIVE: CASE EVENT DATE: 20190823
